FAERS Safety Report 23121720 (Version 2)
Quarter: 2024Q1

REPORT INFORMATION
  Report Type: Report from Study
  Country: US (occurrence: US)
  Receive Date: 20231029
  Receipt Date: 20240216
  Transmission Date: 20240410
  Serious: Yes (Hospitalization)
  Sender: FDA-Public Use
  Company Number: US-ABBVIE-5465342

PATIENT
  Sex: Female

DRUGS (2)
  1. VENCLEXTA [Suspect]
     Active Substance: VENETOCLAX
     Indication: Chronic lymphocytic leukaemia
     Route: 048
     Dates: start: 202305
  2. VENCLEXTA [Suspect]
     Active Substance: VENETOCLAX
     Indication: Chronic lymphocytic leukaemia
     Route: 048

REACTIONS (8)
  - Gastrointestinal disorder [Unknown]
  - Illness [Unknown]
  - Diarrhoea [Unknown]
  - Post-acute COVID-19 syndrome [Unknown]
  - Hot flush [Unknown]
  - Emotional disorder [Unknown]
  - Weight decreased [Unknown]
  - Crying [Unknown]

NARRATIVE: CASE EVENT DATE: 20230101
